FAERS Safety Report 8895262 (Version 4)
Quarter: 2013Q3

REPORT INFORMATION
  Report Type: Spontaneous
  Country: US (occurrence: US)
  Receive Date: 20121108
  Receipt Date: 20130704
  Transmission Date: 20140515
  Serious: Yes (Death, Other)
  Sender: FDA-Public Use
  Company Number: US-ASTRAZENECA-2012SE83159

PATIENT
  Age: 69 Year
  Sex: Male
  Weight: 74.8 kg

DRUGS (2)
  1. NEXIUM [Suspect]
     Indication: GASTROOESOPHAGEAL REFLUX DISEASE
     Route: 048
     Dates: start: 2011, end: 20130130
  2. TOPROL XL [Suspect]
     Indication: HYPERTENSION
     Route: 048
     Dates: start: 2010, end: 20130130

REACTIONS (6)
  - Lung cancer metastatic [Fatal]
  - Metastases to central nervous system [Fatal]
  - Myocardial infarction [Unknown]
  - Brain neoplasm malignant [Unknown]
  - Aphasia [Unknown]
  - Malaise [Unknown]
